FAERS Safety Report 10043178 (Version 2)
Quarter: 2014Q2

REPORT INFORMATION
  Report Type: Report from Study
  Country: CA (occurrence: CA)
  Receive Date: 20140328
  Receipt Date: 20140604
  Transmission Date: 20141212
  Serious: Yes (Hospitalization)
  Sender: FDA-Public Use
  Company Number: CA-BRISTOL-MYERS SQUIBB COMPANY-20548384

PATIENT
  Age: 57 Year
  Sex: Female

DRUGS (12)
  1. ORENCIA [Suspect]
     Indication: RHEUMATOID ARTHRITIS
     Dosage: INTERRUPTED ON 17MAR14
     Dates: start: 20120807
  2. IRON [Suspect]
  3. LYRICA [Concomitant]
  4. RAMIPRIL [Concomitant]
  5. LIPITOR [Concomitant]
  6. METHOTREXATE [Concomitant]
  7. PAXIL [Concomitant]
  8. PIOGLITAZONE HCL [Concomitant]
  9. PANTOLOC [Concomitant]
  10. SEROQUEL [Concomitant]
  11. CLONAZEPAM [Concomitant]
  12. FOLIC ACID [Concomitant]

REACTIONS (8)
  - Blood glucose decreased [Unknown]
  - Convulsion [Unknown]
  - Gastrointestinal ulcer [Unknown]
  - Rectal haemorrhage [Unknown]
  - Vomiting [Unknown]
  - Diarrhoea [Unknown]
  - Fatigue [Unknown]
  - Lower respiratory tract infection [Unknown]
